FAERS Safety Report 6133393-8 (Version None)
Quarter: 2009Q1

REPORT INFORMATION
  Report Type: 
  Country: None (occurrence: None)
  Receive Date: 20090326
  Receipt Date: 20090320
  Transmission Date: 20090719
  Serious: Yes (Other)
  Sender: FDA-Public Use
  Company Number: PHHY2009BR07823

PATIENT
  Age: 75 Year
  Sex: Female
  Weight: 63 kg

DRUGS (2)
  1. FORASEQ [Suspect]
     Indication: EMPHYSEMA
     Dosage: 2 INHALATION PER DAY
     Dates: start: 20090101
  2. OMEPRAZOLE [Concomitant]
     Indication: HIATUS HERNIA
     Dosage: 40 MG, QD
     Route: 048

REACTIONS (2)
  - ABDOMINAL PAIN UPPER [None]
  - POLLAKIURIA [None]
